FAERS Safety Report 5329810-3 (Version None)
Quarter: 2007Q2

REPORT INFORMATION
  Report Type: 
  Country: None (occurrence: None)
  Receive Date: 20070517
  Receipt Date: 20070517
  Transmission Date: 20071010
  Serious: Yes (Disabling)
  Sender: FDA-Public Use
  Company Number: None

PATIENT
  Sex: Female
  Weight: 70.3075 kg

DRUGS (1)
  1. ADVAIR DISKUS 500/50 [Suspect]
     Indication: ASTHMA
     Dosage: 500/50 DAILY INHALENT
     Route: 055
     Dates: start: 20021229, end: 20051129

REACTIONS (2)
  - CATARACT [None]
  - OSTEOPOROSIS [None]
